FAERS Safety Report 8624985-2 (Version None)
Quarter: 2012Q3

REPORT INFORMATION
  Report Type: 
  Country: None (occurrence: None)
  Receive Date: 20120827
  Receipt Date: 20120823
  Transmission Date: 20120928
  Serious: Yes (Life-Threatening, Other)
  Sender: FDA-Public Use
  Company Number: PHHY2012TR073004

PATIENT
  Age: 13 Year
  Sex: Female

DRUGS (4)
  1. ETOPOSIDE [Concomitant]
     Indication: NON-HODGKIN'S LYMPHOMA
  2. METHOTREXATE [Suspect]
     Indication: NON-HODGKIN'S LYMPHOMA
     Dosage: 5 G/M^2
  3. CYTARABINE [Concomitant]
     Indication: NON-HODGKIN'S LYMPHOMA
  4. LEUCOVORIN CALCIUM [Concomitant]
     Indication: NON-HODGKIN'S LYMPHOMA

REACTIONS (15)
  - THORACIC HAEMORRHAGE [None]
  - HYPERAEMIA [None]
  - BLISTER [None]
  - TUMOUR LYSIS SYNDROME [None]
  - FEBRILE NEUTROPENIA [None]
  - FUNGAL OESOPHAGITIS [None]
  - PULMONARY OEDEMA [None]
  - HAEMOGLOBIN DECREASED [None]
  - TACHYPNOEA [None]
  - MUCOSAL INFLAMMATION [None]
  - RENAL FAILURE ACUTE [None]
  - PLATELET COUNT DECREASED [None]
  - PRURITUS [None]
  - INTRA-ABDOMINAL HAEMORRHAGE [None]
  - ABDOMINAL DISTENSION [None]
